FAERS Safety Report 9028819 (Version 1)
Quarter: 2013Q1

REPORT INFORMATION
  Report Type: Spontaneous
  Country: FR (occurrence: FR)
  Receive Date: 20130124
  Receipt Date: 20130124
  Transmission Date: 20140127
  Serious: Yes (Other)
  Sender: FDA-Public Use
  Company Number: FR-BRISTOL-MYERS SQUIBB COMPANY-17295668

PATIENT
  Age: 52 Year
  Sex: Female

DRUGS (5)
  1. ABILIFY TABS 5 MG [Suspect]
     Dosage: RESUMED ON 26-OCT-2012 DOSE INCREASED TO 10MG
     Route: 048
     Dates: start: 20121022
  2. QUETIAPINE [Suspect]
     Dosage: 750 MG 23OCT12
     Dates: start: 20121022
  3. DEPAKOTE [Suspect]
     Dates: start: 20121022
  4. LAROXYL [Suspect]
     Route: 048
     Dates: start: 20121022
  5. LEPTICUR [Suspect]
     Dosage: 2 TABS DAILY
     Route: 048

REACTIONS (3)
  - Tremor [Recovered/Resolved]
  - Chest discomfort [Recovered/Resolved]
  - Tachycardia [Recovered/Resolved]
